FAERS Safety Report 9368071 (Version 1)
Quarter: 2013Q2

REPORT INFORMATION
  Report Type: Spontaneous
  Country: US (occurrence: US)
  Receive Date: 20130625
  Receipt Date: 20130625
  Transmission Date: 20140414
  Serious: No
  Sender: FDA-Public Use
  Company Number: US-UPSHER-SMITH LABORATORIES, INC.-13002057

PATIENT
  Age: 52 Year
  Sex: Female

DRUGS (4)
  1. CHLORPROMAZINE HYDROCHLORIDE [Suspect]
     Indication: DEPRESSION
     Dosage: 50 MG, QD
     Route: 048
     Dates: start: 201305, end: 201305
  2. KLONOPIN [Concomitant]
     Indication: DEPRESSION
     Dosage: UNK
  3. PROZAC [Concomitant]
     Dosage: UNK
  4. ADVIL [Concomitant]
     Dosage: UNK

REACTIONS (2)
  - Rash erythematous [Recovered/Resolved]
  - Pruritus [Recovered/Resolved]
